FAERS Safety Report 9110019 (Version 1)
Quarter: 2013Q1

REPORT INFORMATION
  Report Type: Report from Study
  Country: US (occurrence: US)
  Receive Date: 20130222
  Receipt Date: 20130222
  Transmission Date: 20140127
  Serious: Yes (Hospitalization, Other)
  Sender: FDA-Public Use
  Company Number: US-ABBOTT-13P-163-1050474-00

PATIENT
  Sex: Female
  Weight: 63.56 kg

DRUGS (4)
  1. HUMIRA [Suspect]
     Indication: RHEUMATOID ARTHRITIS
     Dates: start: 2012
  2. HUMIRA [Suspect]
     Dates: start: 2011
  3. PREDNISONE [Concomitant]
     Indication: PRODUCT USED FOR UNKNOWN INDICATION
  4. LEVOTHYROXINE [Concomitant]
     Indication: PRODUCT USED FOR UNKNOWN INDICATION

REACTIONS (6)
  - Cartilage injury [Not Recovered/Not Resolved]
  - Hip arthroplasty [Recovered/Resolved]
  - Knee arthroplasty [Recovered/Resolved]
  - Meningitis bacterial [Recovered/Resolved]
  - Deafness [Not Recovered/Not Resolved]
  - Arthralgia [Not Recovered/Not Resolved]
